FAERS Safety Report 8889324 (Version 1)
Quarter: 2012Q4

REPORT INFORMATION
  Report Type: Spontaneous
  Country: US (occurrence: None)
  Receive Date: 20121102
  Receipt Date: 20121102
  Transmission Date: 20130627
  Serious: Yes (Hospitalization, Other)
  Sender: FDA-Public Use
  Company Number: None

PATIENT
  Age: 83 Year
  Sex: Female
  Weight: 49 kg

DRUGS (2)
  1. LEVOFLOXACIN [Suspect]
     Indication: PNEUMONIA MRSA
     Dosage: 500 mg daily po
     Route: 048
     Dates: start: 20120718, end: 20120801
  2. LEVOTHYROXINE [Suspect]
     Dosage: 500 mg daily po
     Route: 048
     Dates: start: 20120702, end: 20120717

REACTIONS (5)
  - Medication error [None]
  - Sepsis [None]
  - Disease recurrence [None]
  - Staphylococcus test positive [None]
  - Drug dispensing error [None]
